FAERS Safety Report 11325011 (Version 1)
Quarter: 2015Q3

REPORT INFORMATION
  Report Type: Spontaneous
  Country: US (occurrence: US)
  Receive Date: 20150730
  Receipt Date: 20150730
  Transmission Date: 20151125
  Serious: Yes (Hospitalization)
  Sender: FDA-Public Use
  Company Number: US-BAYER-2015-390077

PATIENT
  Age: 74 Year
  Sex: Male
  Weight: 107 kg

DRUGS (15)
  1. TREPROSTINIL [Interacting]
     Active Substance: TREPROSTINIL
     Indication: PULMONARY ARTERIAL HYPERTENSION
     Dosage: 1 MG, TID
     Route: 048
  2. IMDUR [Concomitant]
     Active Substance: ISOSORBIDE MONONITRATE
  3. WARFARIN [Interacting]
     Active Substance: WARFARIN
  4. BAYER GENUINE ASPIRIN [Interacting]
     Active Substance: ASPIRIN
  5. TREPROSTINIL [Interacting]
     Active Substance: TREPROSTINIL
     Indication: PULMONARY ARTERIAL HYPERTENSION
     Dosage: .25 MG, Q8HR
     Route: 048
  6. ALLOPURINOL. [Concomitant]
     Active Substance: ALLOPURINOL
  7. GLIPIZIDE. [Concomitant]
     Active Substance: GLIPIZIDE
  8. LOPID [Concomitant]
     Active Substance: GEMFIBROZIL
  9. LOSARTAN. [Suspect]
     Active Substance: LOSARTAN
  10. SODIUM BICARBONATE. [Concomitant]
     Active Substance: SODIUM BICARBONATE
  11. LASIX [Concomitant]
     Active Substance: FUROSEMIDE
  12. TREPROSTINIL [Interacting]
     Active Substance: TREPROSTINIL
     Indication: PULMONARY ARTERIAL HYPERTENSION
     Dosage: .25 MG, TID
     Route: 048
     Dates: start: 20150227
  13. DILTIAZEM [Concomitant]
     Active Substance: DILTIAZEM
  14. ATORVASTATIN [Concomitant]
     Active Substance: ATORVASTATIN
  15. ACTOS [Concomitant]
     Active Substance: PIOGLITAZONE HYDROCHLORIDE

REACTIONS (10)
  - Dyspnoea [Unknown]
  - Chest pain [Unknown]
  - Labelled drug-drug interaction medication error [None]
  - Headache [Unknown]
  - Nausea [Unknown]
  - Gastrointestinal haemorrhage [Unknown]
  - Acute myocardial infarction [Unknown]
  - Acute kidney injury [Unknown]
  - Malaise [Unknown]
  - Cardiac failure acute [Unknown]

NARRATIVE: CASE EVENT DATE: 20150619
